FAERS Safety Report 7436114-1 (Version None)
Quarter: 2011Q2

REPORT INFORMATION
  Report Type: 
  Country: None (occurrence: None)
  Receive Date: 20110425
  Receipt Date: 20110411
  Transmission Date: 20111010
  Serious: Yes (Death)
  Sender: FDA-Public Use
  Company Number: JP-AMGEN INC.-KDC438904

PATIENT
  Age: 72 Year
  Sex: Male
  Weight: 49 kg

DRUGS (14)
  1. IRINOTECAN HYDROCHLORIDE [Concomitant]
     Indication: COLORECTAL CANCER
     Dosage: 200 MG, Q2WK
     Route: 041
     Dates: start: 20100730, end: 20100801
  2. FLUOROURACIL [Concomitant]
     Indication: COLORECTAL CANCER
     Dosage: 500 MG, Q2WK
     Route: 040
     Dates: start: 20100730, end: 20100801
  3. CALCIUM LEVOFOLINATE [Concomitant]
     Indication: COLORECTAL CANCER
     Dosage: 300 MG, Q2WK
     Route: 041
     Dates: start: 20100730, end: 20100801
  4. NAIXAN [Concomitant]
     Route: 048
  5. PARIET [Concomitant]
     Route: 048
  6. LEUCON [Concomitant]
     Route: 048
  7. PANITUMUMAB [Suspect]
     Indication: COLORECTAL CANCER
     Dosage: 6 MG/KG, Q2WK
     Route: 041
     Dates: start: 20100730, end: 20100730
  8. CORTICOSTEROID NOS [Concomitant]
     Indication: PROPHYLAXIS
     Dosage: UNK UNK, UNK
     Route: 065
  9. FLUOROURACIL [Concomitant]
     Dosage: 3500 MG, Q2WK
     Route: 041
     Dates: start: 20100730, end: 20100801
  10. RABEPRAZOLE SODIUM [Concomitant]
     Dosage: UNK UNK, UNK
     Route: 048
  11. NAUZELIN [Concomitant]
     Route: 048
  12. LEUCON [Concomitant]
     Dosage: UNK UNK, UNK
     Route: 048
  13. NAIXAN [Concomitant]
     Dosage: UNK UNK, UNK
     Route: 048
  14. NAUZELIN [Concomitant]
     Dosage: UNK UNK, UNK
     Route: 048

REACTIONS (1)
  - PNEUMONIA [None]
